FAERS Safety Report 6659498-0 (Version None)
Quarter: 2010Q1

REPORT INFORMATION
  Report Type: 
  Country: None (occurrence: None)
  Receive Date: 20100330
  Receipt Date: 20100318
  Transmission Date: 20100710
  Serious: Yes (Death, Life-Threatening, Hospitalization, Disabling, Other)
  Sender: FDA-Public Use
  Company Number: GB-ELI_LILLY_AND_COMPANY-GB201003004714

PATIENT
  Age: 63 Year
  Sex: Male

DRUGS (7)
  1. FLUOXETINE [Suspect]
     Indication: DEPRESSION
     Dosage: 60 MG, DAILY (1/D)
     Route: 048
     Dates: end: 20100201
  2. CHLORPROMAZINE [Concomitant]
     Indication: DEPRESSION
     Dosage: 50 MG, 3/D
     Route: 048
  3. ASPIRIN [Concomitant]
  4. ACETAMINOPHEN AND CODEINE PHOSPHATE [Concomitant]
  5. MIRTAZAPINE [Concomitant]
     Dosage: 30 MG, DAILY (1/D)
  6. MIRTAZAPINE [Concomitant]
     Dosage: 30 MG, DAILY (1/D)
  7. NAPROXEN [Concomitant]

REACTIONS (3)
  - ALVEOLITIS ALLERGIC [None]
  - DYSPNOEA [None]
  - NOSOCOMIAL INFECTION [None]
